FAERS Safety Report 18806863 (Version 2)
Quarter: 2021Q1

REPORT INFORMATION
  Report Type: Spontaneous
  Country: US (occurrence: US)
  Receive Date: 20210128
  Receipt Date: 20210307
  Transmission Date: 20210419
  Serious: No
  Sender: FDA-Public Use
  Company Number: US-TEVA-2021-US-1871440

PATIENT
  Age: 77 Year
  Sex: Female
  Weight: 74.39 kg

DRUGS (1)
  1. GENERIC VENLAFAXINE HCL [Suspect]
     Active Substance: VENLAFAXINE HYDROCHLORIDE
     Indication: DEPRESSION
     Dosage: 150 MILLIGRAM DAILY; FORM OF ADMIN: EXTENDED RELEASE CAPSULE
     Route: 048

REACTIONS (3)
  - Product substitution issue [Unknown]
  - Paraesthesia [Unknown]
  - Drug ineffective [Unknown]
